FAERS Safety Report 5062559-3 (Version None)
Quarter: 2006Q3

REPORT INFORMATION
  Report Type: 
  Country: None (occurrence: None)
  Receive Date: 20060721
  Receipt Date: 20060705
  Transmission Date: 20061208
  Serious: Yes (Death, Hospitalization)
  Sender: FDA-Public Use
  Company Number: 2006001334

PATIENT
  Age: 70 Year
  Sex: Female

DRUGS (7)
  1. ERLOTINIB HCL (TABLET) [Suspect]
     Indication: NON-SMALL CELL LUNG CANCER
     Dosage: SEE IMAGE
     Route: 048
     Dates: start: 20060225, end: 20060613
  2. CAPOTEN [Concomitant]
  3. CARVEDILOL [Concomitant]
  4. TIOTROPIUM BROMIDE [Concomitant]
  5. LOPERAMIDE [Concomitant]
  6. CODEINE [Concomitant]
  7. ACETAMINOPHEN [Concomitant]

REACTIONS (6)
  - CARDIAC TAMPONADE [None]
  - CHEST X-RAY ABNORMAL [None]
  - DILATATION VENTRICULAR [None]
  - HYPOXIA [None]
  - PNEUMONITIS [None]
  - UNEVALUABLE EVENT [None]
